APPROVED DRUG PRODUCT: LEUCOVORIN CALCIUM
Active Ingredient: LEUCOVORIN CALCIUM
Strength: EQ 3MG BASE/ML (EQ 3MG BASE/ML)
Dosage Form/Route: SOLUTION;INTRAMUSCULAR, INTRAVENOUS
Application: A089352 | Product #001
Applicant: ABIC LTD
Approved: Jun 1, 1988 | RLD: No | RS: No | Type: DISCN